FAERS Safety Report 16582373 (Version 1)
Quarter: 2019Q3

REPORT INFORMATION
  Report Type: Spontaneous
  Country: DE (occurrence: DE)
  Receive Date: 20190717
  Receipt Date: 20190717
  Transmission Date: 20191004
  Serious: Yes (Hospitalization)
  Sender: FDA-Public Use
  Company Number: DE-PFIZER INC-2019298545

PATIENT
  Age: 83 Year
  Sex: Female

DRUGS (9)
  1. CABERGOLINE. [Suspect]
     Active Substance: CABERGOLINE
     Dosage: 2 MG, 1-0-0-0
  2. RAMIPRIL. [Concomitant]
     Active Substance: RAMIPRIL
     Dosage: 5 MG, 1-0-0-1
  3. AMLODIPIN HEXAL [AMLODIPINE BESILATE] [Concomitant]
     Dosage: 5 MG, 1-0-0-1
  4. OPIPRAMOL [Suspect]
     Active Substance: OPIPRAMOL
     Dosage: 50 MG, UNK
  5. SPASMEX [TROSPIUM CHLORIDE] [Concomitant]
     Dosage: 30 MG, 1-0-1-0
  6. PRAVASTATIN. [Concomitant]
     Active Substance: PRAVASTATIN
     Dosage: 20 MG, 0-0-0.5-0
  7. ACETYLSALICYLSAEURE [Concomitant]
     Active Substance: ASPIRIN
     Dosage: 100 MG, 0-1-0-0
  8. METOPROLOL. [Concomitant]
     Active Substance: METOPROLOL
     Dosage: 47.5 MG, 1-0-1-0
  9. MEMANTIN [Suspect]
     Active Substance: MEMANTINE
     Dosage: 10 MG, 2-0-0-0

REACTIONS (2)
  - Fall [Unknown]
  - Wound [Unknown]
